FAERS Safety Report 6444538-4 (Version None)
Quarter: 2009Q4

REPORT INFORMATION
  Report Type: 
  Country: None (occurrence: None)
  Receive Date: 20091117
  Receipt Date: 20091117
  Transmission Date: 20100525
  Serious: No
  Sender: FDA-Public Use
  Company Number: None

PATIENT
  Age: 55 Year
  Sex: Female
  Weight: 50.9 kg

DRUGS (1)
  1. PATADAY [Suspect]
     Indication: EYE PRURITUS
     Dosage: 1 DROP QD OPTHALMIC
     Route: 047
     Dates: start: 20091001

REACTIONS (4)
  - EYE PRURITUS [None]
  - FOREIGN BODY SENSATION IN EYES [None]
  - LACRIMAL DISORDER [None]
  - OCULAR HYPERAEMIA [None]
